FAERS Safety Report 7324568-0 (Version None)
Quarter: 2011Q1

REPORT INFORMATION
  Report Type: 
  Country: None (occurrence: None)
  Receive Date: 20110204
  Receipt Date: 20101030
  Transmission Date: 20110831
  Serious: Yes (Hospitalization)
  Sender: FDA-Public Use
  Company Number: MEDI-0011693

PATIENT
  Age: 59 Year
  Sex: Male

DRUGS (10)
  1. SYNTHROID [Suspect]
  2. TENORMIN [Suspect]
  3. ALLOPURINOL [Suspect]
  4. RADIATION THERAPY [Suspect]
  5. NEURONTIN [Suspect]
  6. ETHYOL [Suspect]
     Dosage: 5 IN 1 WK, SUBCUTANEOUS
     Route: 058
     Dates: start: 20100422, end: 20100614
  7. DECADRON [Suspect]
  8. PROTONIX [Suspect]
  9. ELAVIL [Suspect]
  10. ANZEMET [Concomitant]

REACTIONS (1)
  - STEVENS-JOHNSON SYNDROME [None]
